FAERS Safety Report 18081194 (Version 1)
Quarter: 2020Q3

REPORT INFORMATION
  Report Type: Report from Study
  Country: US (occurrence: US)
  Receive Date: 20200728
  Receipt Date: 20200728
  Transmission Date: 20201103
  Serious: Yes (Other)
  Sender: FDA-Public Use
  Company Number: US-ELI_LILLY_AND_COMPANY-US201801008212

PATIENT
  Age: 66 Year
  Sex: Female

DRUGS (7)
  1. TYLENOL [Concomitant]
     Active Substance: ACETAMINOPHEN
     Indication: PRODUCT USED FOR UNKNOWN INDICATION
     Dosage: UNK
  2. FORTEO [Suspect]
     Active Substance: TERIPARATIDE
     Dosage: 20 UG, UNKNOWN
     Route: 058
  3. FORTEO [Suspect]
     Active Substance: TERIPARATIDE
     Dosage: 20 UG, UNKNOWN
     Route: 058
  4. SUDAFED [Concomitant]
     Active Substance: PSEUDOEPHEDRINE HYDROCHLORIDE
     Indication: PRODUCT USED FOR UNKNOWN INDICATION
  5. FORTEO [Suspect]
     Active Substance: TERIPARATIDE
     Dosage: 20 UG, UNKNOWN
     Route: 058
     Dates: end: 201910
  6. FORTEO [Suspect]
     Active Substance: TERIPARATIDE
     Indication: OSTEOPOROSIS
     Dosage: 20 UG, UNKNOWN
     Route: 058
     Dates: start: 20171010
  7. LEXAPRO [Concomitant]
     Active Substance: ESCITALOPRAM OXALATE
     Indication: PRODUCT USED FOR UNKNOWN INDICATION

REACTIONS (27)
  - Heart rate increased [Recovered/Resolved]
  - Pain [Not Recovered/Not Resolved]
  - Dizziness [Not Recovered/Not Resolved]
  - Burning sensation [Not Recovered/Not Resolved]
  - Cystitis [Recovered/Resolved]
  - Weight decreased [Not Recovered/Not Resolved]
  - Bone pain [Not Recovered/Not Resolved]
  - Urine abnormality [Unknown]
  - Decreased appetite [Not Recovered/Not Resolved]
  - Influenza [Recovered/Resolved]
  - Osteoarthritis [Unknown]
  - Tachycardia [Not Recovered/Not Resolved]
  - Fatigue [Recovering/Resolving]
  - Asthenia [Unknown]
  - Muscle atrophy [Not Recovered/Not Resolved]
  - Depression [Unknown]
  - Nausea [Unknown]
  - Tinnitus [Not Recovered/Not Resolved]
  - Seasonal allergy [Recovering/Resolving]
  - Dry mouth [Unknown]
  - Heart rate decreased [Recovered/Resolved]
  - Osteoporosis [Unknown]
  - Myalgia [Not Recovered/Not Resolved]
  - Neck mass [Unknown]
  - Fibromyalgia [Unknown]
  - Memory impairment [Unknown]
  - Arthralgia [Unknown]

NARRATIVE: CASE EVENT DATE: 20171010
